FAERS Safety Report 15796667 (Version 4)
Quarter: 2022Q2

REPORT INFORMATION
  Report Type: Other
  Country: DE (occurrence: None)
  Receive Date: 20190108
  Receipt Date: 20220510
  Transmission Date: 20220720
  Serious: No
  Sender: FDA-Public Use
  Company Number: DE-ROCHE-2137306

PATIENT
  Age: 49 Year
  Sex: Female

DRUGS (14)
  1. OCREVUS [Suspect]
     Active Substance: OCRELIZUMAB
     Indication: Primary progressive multiple sclerosis
     Route: 042
     Dates: start: 20180523
  2. OCREVUS [Suspect]
     Active Substance: OCRELIZUMAB
     Dosage: NEXT DOSE RECEIVED: 10/JUN/2020
     Route: 042
     Dates: start: 20181205
  3. OCREVUS [Suspect]
     Active Substance: OCRELIZUMAB
     Route: 042
     Dates: start: 20200610
  4. OCREVUS [Suspect]
     Active Substance: OCRELIZUMAB
     Route: 042
  5. BACLOFEN [Concomitant]
     Active Substance: BACLOFEN
  6. CHOLECALCIFEROL [Concomitant]
     Active Substance: CHOLECALCIFEROL
  7. SPASMEX (GERMANY) [Concomitant]
  8. SPASMEX (GERMANY) [Concomitant]
  9. METHOCARBAMOL [Concomitant]
     Active Substance: METHOCARBAMOL
  10. ORTOTON [Concomitant]
  11. COMIRNATY [Concomitant]
     Active Substance: TOZINAMERAN
     Indication: COVID-19 immunisation
     Dosage: FIRST DOSE
  12. COMIRNATY [Concomitant]
     Active Substance: TOZINAMERAN
     Dosage: SECOND DOSE
     Dates: start: 20210512
  13. ESTRIOL [Concomitant]
     Active Substance: ESTRIOL
  14. CHOLECALCIFEROL [Concomitant]
     Active Substance: CHOLECALCIFEROL

REACTIONS (9)
  - Fatigue [Recovered/Resolved]
  - Nasopharyngitis [Recovered/Resolved]
  - Urinary tract infection [Recovered/Resolved]
  - Cystitis noninfective [Unknown]
  - Joint stiffness [Recovering/Resolving]
  - Dysuria [Recovering/Resolving]
  - Tinnitus [Not Recovered/Not Resolved]
  - Sensory disturbance [Recovered/Resolved]
  - COVID-19 [Recovered/Resolved]

NARRATIVE: CASE EVENT DATE: 20180523
